FAERS Safety Report 7096171-1 (Version None)
Quarter: 2010Q4

REPORT INFORMATION
  Report Type: 
  Country: None (occurrence: None)
  Receive Date: 20101111
  Receipt Date: 20101109
  Transmission Date: 20110411
  Serious: Yes (Hospitalization)
  Sender: FDA-Public Use
  Company Number: GB-PFIZER INC-2007048853

PATIENT
  Age: 62 Year
  Sex: Male
  Weight: 86.9 kg

DRUGS (9)
  1. SUNITINIB MALATE [Suspect]
     Indication: RENAL CELL CARCINOMA
     Dosage: 50 MG, 1X/DAY
     Route: 048
     Dates: start: 20060804
  2. MORPHINE SULFATE [Concomitant]
     Route: 048
     Dates: start: 20020101
  3. GABAPENTIN [Concomitant]
     Route: 048
     Dates: start: 20020101
  4. LANSOPRAZOLE [Concomitant]
     Route: 048
     Dates: start: 20020101
  5. METOCLOPRAMIDE [Concomitant]
     Route: 048
     Dates: start: 20020101
  6. CELECOXIB [Concomitant]
     Route: 048
     Dates: start: 20020101
  7. ENALAPRIL MALEATE [Concomitant]
     Route: 048
     Dates: start: 20020101
  8. PARACETAMOL [Concomitant]
     Route: 048
     Dates: start: 20020101
  9. TEMAZEPAM [Concomitant]
     Route: 048
     Dates: start: 20020101

REACTIONS (1)
  - CONFUSIONAL STATE [None]
